FAERS Safety Report 5378764-2 (Version None)
Quarter: 2007Q3

REPORT INFORMATION
  Report Type: 
  Country: None (occurrence: None)
  Receive Date: 20070705
  Receipt Date: 20070627
  Transmission Date: 20080115
  Serious: Yes (Life-Threatening, Other)
  Sender: FDA-Public Use
  Company Number: B0477722A

PATIENT
  Age: 78 Year
  Sex: Male
  Weight: 74.5 kg

DRUGS (12)
  1. AVANDAMET [Suspect]
     Route: 048
     Dates: start: 20070125, end: 20070601
  2. ATORVASTATIN [Concomitant]
     Route: 048
  3. CLOPIDOGREL BISULFATE [Concomitant]
     Route: 048
  4. CO-MAGALDROX [Concomitant]
     Route: 048
  5. GLYCERYL TRINITRATE [Concomitant]
     Route: 060
  6. LIDOCAINE [Concomitant]
     Dosage: 2ML AS REQUIRED
     Route: 065
  7. METFORMIN HYDROCHLORIDE [Concomitant]
     Dosage: 500MG TWICE PER DAY
     Route: 048
  8. METOPROLOL TARTRATE [Concomitant]
     Dosage: 50MG TWICE PER DAY
     Route: 048
  9. OMEPRAZOLE [Concomitant]
     Route: 048
  10. PARACETAMOL [Concomitant]
     Dosage: 500MG AS REQUIRED
     Route: 048
  11. RAMIPRIL [Concomitant]
     Dosage: 10MG PER DAY
     Route: 048
  12. GOSERELIN [Concomitant]
     Route: 065

REACTIONS (2)
  - DYSPNOEA [None]
  - OEDEMA PERIPHERAL [None]
